FAERS Safety Report 16770100 (Version 1)
Quarter: 2019Q3

REPORT INFORMATION
  Report Type: Spontaneous
  Country: IT (occurrence: IT)
  Receive Date: 20190904
  Receipt Date: 20190904
  Transmission Date: 20191005
  Serious: Yes (Other)
  Sender: FDA-Public Use
  Company Number: IT-ACCORD-153502

PATIENT
  Sex: Male

DRUGS (6)
  1. TOPOTECAN [Suspect]
     Active Substance: TOPOTECAN HYDROCHLORIDE
     Indication: RETINOBLASTOMA
     Dosage: 1 INJECTION 1 WEEK AFTER IA, INTRAVITREAL
  2. CARBOPLATIN. [Suspect]
     Active Substance: CARBOPLATIN
     Indication: RETINOBLASTOMA
     Dosage: 1 INJECTION 1 WEEK AFTER IA, INTRAVITREAL
  3. TOPOTECAN [Suspect]
     Active Substance: TOPOTECAN HYDROCHLORIDE
     Indication: RETINOBLASTOMA
     Dosage: 0.3 - 2 MG, 3-9 INFUSIONS EVERY 3 WEEKS
     Route: 013
  4. CARBOPLATIN. [Suspect]
     Active Substance: CARBOPLATIN
     Indication: RETINOBLASTOMA
     Dosage: 3-9 INFUSIONS EVERY 3 WEEKS
     Route: 013
  5. MELPHALAN. [Suspect]
     Active Substance: MELPHALAN
     Indication: RETINOBLASTOMA
     Dosage: 2.5 - 5 MG, 3-9 INFUSIONS EVERY 3 WEEKS
     Route: 013
  6. MELPHALAN. [Suspect]
     Active Substance: MELPHALAN
     Indication: RETINOBLASTOMA
     Dosage: 10-30 UG, 1 INJECTION 1 WEEK AFTER IA, INTRAVITREAL

REACTIONS (2)
  - Chorioretinal atrophy [Unknown]
  - Off label use [Unknown]
